FAERS Safety Report 6029475-1 (Version None)
Quarter: 2009Q1

REPORT INFORMATION
  Report Type: 
  Country: None (occurrence: None)
  Receive Date: 20090105
  Receipt Date: 20090105
  Transmission Date: 20090719
  Serious: Yes (Life-Threatening, Hospitalization, Other)
  Sender: FDA-Public Use
  Company Number: None

PATIENT
  Age: 15 Year
  Sex: Female
  Weight: 45.3597 kg

DRUGS (2)
  1. ZOLOFT [Suspect]
     Indication: DEPRESSION
     Dosage: LOW DOSAGE - DON'T REMEMBER DAILY PO
     Route: 048
     Dates: start: 20070825, end: 20070914
  2. LEXAPRO [Suspect]
     Indication: DEPRESSION
     Dosage: LOW DOSAGE - DON'T REMEMBER DAILY PO
     Route: 048
     Dates: start: 20070915, end: 20071020

REACTIONS (3)
  - CONDITION AGGRAVATED [None]
  - DEPRESSION [None]
  - SUICIDAL BEHAVIOUR [None]
